FAERS Safety Report 19284263 (Version 2)
Quarter: 2021Q3

REPORT INFORMATION
  Report Type: Spontaneous
  Country: FR (occurrence: FR)
  Receive Date: 20210521
  Receipt Date: 20210811
  Transmission Date: 20211014
  Serious: Yes (Hospitalization, Other)
  Sender: FDA-Public Use
  Company Number: FR-SA-2021SA161721

PATIENT
  Age: 47 Year
  Sex: Male

DRUGS (12)
  1. RIFAMPICIN [Suspect]
     Active Substance: RIFAMPIN
     Indication: TUBERCULOUS PLEURISY
     Dosage: TWO CAPSULES OF RIFAMPICIN (TOTAL OF 15 RIFAMPICIN CAPSULES I.E., 4500 MG)
     Dates: start: 19730601, end: 19730612
  2. RIMIFON [Concomitant]
     Active Substance: ISONIAZID
     Indication: TUBERCULOUS PLEURISY
     Dosage: 450 MG, QD
     Route: 048
     Dates: start: 19720111, end: 197305
  3. RIMIFON [Concomitant]
     Active Substance: ISONIAZID
     Dosage: UNK
     Dates: start: 1973
  4. TERRAMYCIN [Concomitant]
     Active Substance: OXYTETRACYCLINE\OXYTETRACYCLINE HYDROCHLORIDE
     Dosage: 1.5 G
     Route: 048
     Dates: start: 19730525
  5. RIFAMPICIN [Suspect]
     Active Substance: RIFAMPIN
     Dosage: 600 MG ONE DAY AND 300 MG THE NEXT DAY, ALTERNATELY
     Dates: start: 19730101, end: 19730611
  6. GENTAMICIN SULFATE. [Suspect]
     Active Substance: GENTAMICIN SULFATE
     Indication: BACTERAEMIA
     Dosage: 80 MG, BID (MORNING AND EVENING)
     Route: 030
     Dates: start: 19730602, end: 19730607
  7. STROMBA [Concomitant]
     Active Substance: STANOZOLOL
  8. RIFAMPICIN [Suspect]
     Active Substance: RIFAMPIN
     Dosage: 600 MG, QD
     Route: 048
     Dates: start: 19720111, end: 197204
  9. ETHAMBUTOL [Concomitant]
     Active Substance: ETHAMBUTOL HYDROCHLORIDE
     Indication: TUBERCULOUS PLEURISY
     Dosage: 1200 MG, QD
     Route: 048
     Dates: start: 19720111
  10. AMPICILLIN [Suspect]
     Active Substance: AMPICILLIN
     Indication: BACTERAEMIA
     Dosage: 1 G, BID (MORNING AND EVENING)
     Route: 030
     Dates: start: 19730602, end: 19730607
  11. ACTIVAROL [CALCIUM GLUCONATE;CYANOCOBALAMIN;GLYCINE;HEMATOPORPHYRIN] [Concomitant]
     Dosage: UNK
  12. ETHAMBUTOL [Concomitant]
     Active Substance: ETHAMBUTOL HYDROCHLORIDE
     Dosage: 1200 MG, QD
     Route: 048
     Dates: start: 19730101

REACTIONS (18)
  - Chromaturia [Recovered/Resolved]
  - Immune thrombocytopenia [Recovered/Resolved]
  - Asthenia [Recovered/Resolved]
  - Anaemia [Recovered/Resolved]
  - Polyuria [Recovered/Resolved]
  - Nausea [Recovered/Resolved]
  - Ecchymosis [Recovered/Resolved]
  - Haemoptysis [Recovered/Resolved]
  - Thrombocytopenia [Recovered/Resolved]
  - Injection site haematoma [Unknown]
  - Petechiae [Recovered/Resolved]
  - Chills [Recovered/Resolved]
  - Pyrexia [Recovered/Resolved]
  - Purpura [Recovered/Resolved]
  - Malaise [Recovered/Resolved]
  - Fatigue [Recovered/Resolved]
  - Back pain [Recovered/Resolved]
  - Oliguria [Recovered/Resolved]

NARRATIVE: CASE EVENT DATE: 197306
